FAERS Safety Report 20368737 (Version 1)
Quarter: 2022Q1

REPORT INFORMATION
  Report Type: Spontaneous
  Country: US (occurrence: None)
  Receive Date: 20220121
  Receipt Date: 20220121
  Transmission Date: 20220423
  Serious: Yes (Hospitalization)
  Sender: FDA-Public Use
  Company Number: None

PATIENT
  Age: 14 Year
  Sex: Female

DRUGS (1)
  1. EVEROLIMUS [Suspect]
     Active Substance: EVEROLIMUS
     Dosage: FREQUENCY : DAILY;?
     Route: 048

REACTIONS (6)
  - Fatigue [None]
  - Seizure [None]
  - Menstruation irregular [None]
  - Heavy menstrual bleeding [None]
  - Leukoplakia oral [None]
  - Polymenorrhoea [None]

NARRATIVE: CASE EVENT DATE: 20210901
